FAERS Safety Report 9057510 (Version 1)
Quarter: 2013Q1

REPORT INFORMATION
  Report Type: Spontaneous
  Country: FR (occurrence: FR)
  Receive Date: 20130204
  Receipt Date: 20130204
  Transmission Date: 20140127
  Serious: Yes (Hospitalization)
  Sender: FDA-Public Use
  Company Number: FR-PFIZER INC-2013038374

PATIENT
  Age: 49 Year
  Sex: Male

DRUGS (3)
  1. CELEBREX [Suspect]
     Dosage: 100 MG, 3X/DAY
     Route: 048
     Dates: start: 2009, end: 20121020
  2. IBUPROFEN [Suspect]
     Dosage: 1 DF, SINGLE
     Route: 048
     Dates: start: 20121110, end: 20121110
  3. DOLIPRANE [Suspect]
     Dosage: 1 G, SINGLE
     Route: 048
     Dates: start: 20121110, end: 20121110

REACTIONS (4)
  - Erythema multiforme [Recovered/Resolved]
  - Pyrexia [Recovered/Resolved]
  - Eosinophilia [Recovered/Resolved]
  - Asthenia [Recovered/Resolved]
